FAERS Safety Report 8072098-3 (Version None)
Quarter: 2012Q1

REPORT INFORMATION
  Report Type: 
  Country: None (occurrence: None)
  Receive Date: 20120126
  Receipt Date: 20120123
  Transmission Date: 20120608
  Serious: Yes (Other)
  Sender: FDA-Public Use
  Company Number: US-GENZYME-CAMP-1001840

PATIENT
  Sex: Female
  Weight: 68.027 kg

DRUGS (12)
  1. METHYLPREDNISOLONE [Concomitant]
     Indication: MULTIPLE SCLEROSIS
     Dosage: 1.0 G, QD
     Route: 042
     Dates: start: 20090330, end: 20090401
  2. ALOXI [Concomitant]
     Indication: PROPHYLAXIS
     Dosage: 25 MG, EVERY 21 DAYS PRIOR TO CHEMO
     Route: 042
     Dates: end: 20111222
  3. ALEMTUZUMAB [Suspect]
     Indication: MULTIPLE SCLEROSIS
     Dosage: 24 MG, QD
     Route: 042
     Dates: start: 20100414, end: 20100416
  4. BENADRYL [Concomitant]
     Indication: PROPHYLAXIS
     Dosage: 12.5 MG, EVERY 21 DAYS PRIOR TO CHEMO
     Route: 042
     Dates: end: 20111222
  5. DECADRON [Concomitant]
     Dosage: 10 MG, EVERY 21 DAYS PRIOR TO CHEMO
     Route: 042
     Dates: end: 20111222
  6. ALEMTUZUMAB [Suspect]
     Dosage: 24 MG, QD
     Route: 042
     Dates: start: 20090330, end: 20090403
  7. METHYLPREDNISOLONE [Concomitant]
     Dosage: 1.0 G, QD
     Route: 042
     Dates: start: 20100414, end: 20100416
  8. NEUPOGEN [Concomitant]
     Indication: WHITE BLOOD CELL COUNT DECREASED
     Dosage: 300 MCG, ONCE
     Route: 030
     Dates: start: 20110915, end: 20110915
  9. NEUPOGEN [Concomitant]
     Indication: NEUTROPHIL COUNT DECREASED
  10. DECADRON [Concomitant]
     Indication: PROPHYLAXIS
     Dosage: 8 MG DAY BEFORE, DAY OF AND DAY AFTER CHEMO
     Route: 048
     Dates: start: 20110907, end: 20111222
  11. PEPCID [Concomitant]
     Indication: PROPHYLAXIS
     Dosage: 20 MG, EVERY 21 DAYS PRIOR TO CHEMO
     Route: 042
     Dates: end: 20111222
  12. VITAMIN D [Concomitant]
     Indication: PROPHYLAXIS
     Dosage: 5000 U, QD
     Route: 048
     Dates: start: 20110705

REACTIONS (1)
  - BREAST CANCER [None]
